FAERS Safety Report 13756944 (Version 1)
Quarter: 2017Q3

REPORT INFORMATION
  Report Type: Spontaneous
  Country: US (occurrence: US)
  Receive Date: 20170714
  Receipt Date: 20170714
  Transmission Date: 20171127
  Serious: No
  Sender: FDA-Public Use
  Company Number: US-SHIRE-US201713468

PATIENT
  Sex: Female
  Weight: 91.16 kg

DRUGS (4)
  1. DANAZOL. [Suspect]
     Active Substance: DANAZOL
     Indication: PRODUCT USED FOR UNKNOWN INDICATION
     Dosage: 200 MG, UNKNOWN
     Route: 065
  2. DANAZOL. [Suspect]
     Active Substance: DANAZOL
     Dosage: UNK, UNKNOWN
     Route: 065
  3. FIRAZYR [Suspect]
     Active Substance: ICATIBANT ACETATE
     Indication: HEREDITARY ANGIOEDEMA
     Dosage: 30 MG, AS REQ^D
     Route: 058
     Dates: start: 20160106
  4. CINRYZE [Concomitant]
     Active Substance: HUMAN C1-ESTERASE INHIBITOR
     Indication: HEREDITARY ANGIOEDEMA
     Dosage: UNK UNK, OTHER (EVERY 3-4 DAYS)
     Route: 042
     Dates: start: 20170314, end: 201705

REACTIONS (2)
  - Fluid retention [Unknown]
  - Blood pressure increased [Unknown]
